FAERS Safety Report 9263808 (Version 1)
Quarter: 2013Q2

REPORT INFORMATION
  Report Type: Spontaneous
  Country: US (occurrence: US)
  Receive Date: 20130430
  Receipt Date: 20130430
  Transmission Date: 20140414
  Serious: Yes (Hospitalization)
  Sender: FDA-Public Use
  Company Number: US-BAYER-2013-052611

PATIENT
  Age: 39 Year
  Sex: Female

DRUGS (4)
  1. YAZ [Suspect]
  2. NITROGLYCERINE [Concomitant]
     Dosage: UNK
     Dates: start: 20130211
  3. PERCOCET [Concomitant]
  4. NICODERM [Concomitant]

REACTIONS (1)
  - Pulmonary embolism [None]
